FAERS Safety Report 8458849-4 (Version None)
Quarter: 2012Q2

REPORT INFORMATION
  Report Type: 
  Country: None (occurrence: None)
  Receive Date: 20120622
  Receipt Date: 20120611
  Transmission Date: 20120825
  Serious: Yes (Other)
  Sender: FDA-Public Use
  Company Number: US-ELI_LILLY_AND_COMPANY-US201206004227

PATIENT
  Age: 59 Year
  Sex: Female

DRUGS (3)
  1. PROZAC [Suspect]
     Indication: OFF LABEL USE
     Dosage: 40 MG, QD
     Dates: end: 20100101
  2. CYMBALTA [Suspect]
     Indication: AFFECTIVE DISORDER
     Dosage: 60 MG, QD
     Dates: start: 20100101, end: 20120528
  3. FLUOXETINE [Concomitant]

REACTIONS (11)
  - FALL [None]
  - FRACTURE [None]
  - SURGERY [None]
  - OFF LABEL USE [None]
  - DRUG INEFFECTIVE [None]
  - KNEE ARTHROPLASTY [None]
  - ABNORMAL BEHAVIOUR [None]
  - DEPENDENCE [None]
  - CRYING [None]
  - NERVOUSNESS [None]
  - FEELING ABNORMAL [None]
